FAERS Safety Report 4361140-9 (Version None)
Quarter: 2004Q2

REPORT INFORMATION
  Report Type: 
  Country: None (occurrence: None)
  Receive Date: 20040511
  Receipt Date: 20040113
  Transmission Date: 20050107
  Serious: Yes (Hospitalization)
  Sender: FDA-Public Use
  Company Number: USA040156520

PATIENT
  Age: 51 Year
  Sex: Female
  Weight: 50 kg

DRUGS (2)
  1. PROZAC [Suspect]
     Indication: DEPRESSION
     Dosage: 700 MG/DAY
  2. VERAPAMIL [Concomitant]

REACTIONS (5)
  - BRADYCARDIA [None]
  - INTENTIONAL OVERDOSE [None]
  - PYREXIA [None]
  - SUICIDE ATTEMPT [None]
  - TACHYCARDIA [None]
